FAERS Safety Report 25388901 (Version 1)
Quarter: 2025Q2

REPORT INFORMATION
  Report Type: Spontaneous
  Country: FR (occurrence: FR)
  Receive Date: 20250603
  Receipt Date: 20250603
  Transmission Date: 20250717
  Serious: Yes (Other)
  Sender: ABBVIE
  Company Number: FR-ABBVIE-6307364

PATIENT
  Age: 65 Year
  Sex: Female

DRUGS (3)
  1. VENETOCLAX [Suspect]
     Active Substance: VENETOCLAX
     Indication: Diffuse large B-cell lymphoma refractory
     Route: 048
  2. COLUMVI [Concomitant]
     Active Substance: GLOFITAMAB-GXBM
     Indication: Product used for unknown indication
  3. COLUMVI [Concomitant]
     Active Substance: GLOFITAMAB-GXBM
     Indication: Product used for unknown indication

REACTIONS (1)
  - Diffuse large B-cell lymphoma recurrent [Unknown]

NARRATIVE: CASE EVENT DATE: 20250501
